FAERS Safety Report 5346387-7 (Version None)
Quarter: 2007Q2

REPORT INFORMATION
  Report Type: 
  Country: None (occurrence: None)
  Receive Date: 20070605
  Receipt Date: 20070524
  Transmission Date: 20071010
  Serious: Yes (Hospitalization)
  Sender: FDA-Public Use
  Company Number: GB-ELI_LILLY_AND_COMPANY-GB200705006848

PATIENT
  Age: 10 Year
  Sex: Female

DRUGS (6)
  1. GEMCITABINE HCL [Suspect]
     Indication: MEDULLOBLASTOMA RECURRENT
     Dosage: 920 MG, UNK
     Route: 042
     Dates: start: 20070504, end: 20070504
  2. GEMCITABINE HCL [Suspect]
     Dosage: 920 MG, UNK
     Route: 042
     Dates: start: 20070518, end: 20070518
  3. OXALIPLATIN [Suspect]
     Indication: MEDULLOBLASTOMA
     Dosage: 92 MG, UNK
     Route: 042
     Dates: start: 20070504, end: 20070504
  4. OXALIPLATIN [Suspect]
     Dosage: 92 MG, UNK
     Route: 042
     Dates: start: 20070518, end: 20070518
  5. PARACETAMOL [Concomitant]
     Route: 042
     Dates: start: 20070518, end: 20070518
  6. ONDANSETRON [Concomitant]
     Route: 042
     Dates: start: 20070518, end: 20070518

REACTIONS (4)
  - ASTHENIA [None]
  - DYSAESTHESIA PHARYNX [None]
  - DYSARTHRIA [None]
  - EYE MOVEMENT DISORDER [None]
